FAERS Safety Report 8218976-3 (Version None)
Quarter: 2012Q1

REPORT INFORMATION
  Report Type: 
  Country: None (occurrence: None)
  Receive Date: 20120319
  Receipt Date: 20120312
  Transmission Date: 20120608
  Serious: Yes (Hospitalization, Disabling)
  Sender: FDA-Public Use
  Company Number: US-MERCK-1201USA02538

PATIENT
  Age: 66 Year
  Sex: Female

DRUGS (2)
  1. FOSAMAX [Suspect]
     Indication: BONE DENSITY DECREASED
     Route: 048
     Dates: start: 20021001, end: 20051001
  2. FOSAMAX [Suspect]
     Route: 048
     Dates: start: 20060101, end: 20090101

REACTIONS (13)
  - CYSTITIS [None]
  - BONE DENSITY DECREASED [None]
  - ADVERSE EVENT [None]
  - TOOTH DISORDER [None]
  - IMPAIRED HEALING [None]
  - BONE DISORDER [None]
  - FEMUR FRACTURE [None]
  - RASH [None]
  - POSTOPERATIVE WOUND INFECTION [None]
  - DEVICE FAILURE [None]
  - ENDOMETRIAL DISORDER [None]
  - PAIN IN EXTREMITY [None]
  - NAIL DISORDER [None]
